FAERS Safety Report 5324917-9 (Version None)
Quarter: 2007Q2

REPORT INFORMATION
  Report Type: 
  Country: None (occurrence: None)
  Receive Date: 20070515
  Receipt Date: 20070507
  Transmission Date: 20071010
  Serious: Yes (Other)
  Sender: FDA-Public Use
  Company Number: PHBS2007IT07940

PATIENT
  Age: 53 Year
  Sex: Female

DRUGS (1)
  1. TOLEP [Suspect]
     Indication: CEREBRAL HAEMORRHAGE
     Dosage: 300 MG/DAY
     Route: 048
     Dates: start: 20030301

REACTIONS (1)
  - EPILEPSY [None]
